FAERS Safety Report 10287502 (Version 2)
Quarter: 2014Q3

REPORT INFORMATION
  Report Type: Spontaneous
  Country: US (occurrence: None)
  Receive Date: 20140707
  Receipt Date: 20140729
  Transmission Date: 20150326
  Serious: Yes (Other)
  Sender: FDA-Public Use
  Company Number: 2014-US-008025

PATIENT
  Age: 32 Year
  Sex: Male
  Weight: 97.5 kg

DRUGS (4)
  1. WELLBURTIN (BUPROPION HYDROCHLORIDE) [Concomitant]
  2. XYREM [Suspect]
     Active Substance: SODIUM OXYBATE
     Indication: CATAPLEXY
     Route: 048
     Dates: start: 201202
  3. XYREM [Suspect]
     Active Substance: SODIUM OXYBATE
     Indication: NARCOLEPSY
     Route: 048
     Dates: start: 201202
  4. ADDERALL XR (AMFETAMINE ASPARTATE, AMFETAMINE SULFATE, DEXAMFETAMINE SACCHARATE, DEXAMEFTAMINE SULFATE) [Concomitant]

REACTIONS (5)
  - Bipolar disorder [None]
  - Mood swings [None]
  - Anger [None]
  - Condition aggravated [None]
  - Feeling drunk [None]

NARRATIVE: CASE EVENT DATE: 2013
